FAERS Safety Report 5727221-X (Version None)
Quarter: 2008Q2

REPORT INFORMATION
  Report Type: 
  Country: None (occurrence: None)
  Receive Date: 20080505
  Receipt Date: 20080430
  Transmission Date: 20081010
  Serious: Yes (Other)
  Sender: FDA-Public Use
  Company Number: IT-BRISTOL-MYERS SQUIBB COMPANY-14171128

PATIENT
  Age: 83 Year
  Sex: Female

DRUGS (4)
  1. PRAVASELECT [Suspect]
     Indication: HYPERCHOLESTEROLAEMIA
     Route: 048
     Dates: start: 20070601, end: 20070701
  2. PRAVASELECT [Suspect]
     Indication: CORONARY ARTERY DISEASE
     Route: 048
     Dates: start: 20070601, end: 20070701
  3. LANSOPRAZOLE [Concomitant]
     Route: 048
     Dates: start: 20070301, end: 20070701
  4. FUROSEMIDE [Concomitant]
     Route: 048
     Dates: start: 20070301, end: 20070701

REACTIONS (3)
  - ALOPECIA [None]
  - DIARRHOEA [None]
  - WEIGHT DECREASED [None]
